FAERS Safety Report 9636553 (Version 2)
Quarter: 2015Q2

REPORT INFORMATION
  Report Type: Spontaneous
  Country: US (occurrence: US)
  Receive Date: 20131021
  Receipt Date: 20150512
  Transmission Date: 20150821
  Serious: Yes (Death)
  Sender: FDA-Public Use
  Company Number: PHHY2013US113730

PATIENT
  Age: 36 Year
  Sex: Male
  Weight: 100 kg

DRUGS (3)
  1. FORMALDEHYDE. [Suspect]
     Active Substance: FORMALDEHYDE
     Indication: COMPLETED SUICIDE
     Route: 065
  2. TRAMADOL [Suspect]
     Active Substance: TRAMADOL
     Indication: COMPLETED SUICIDE
     Route: 065
  3. AMFETAMINE [Suspect]
     Active Substance: AMPHETAMINE
     Indication: COMPLETED SUICIDE
     Route: 065

REACTIONS (5)
  - Intentional overdose [Fatal]
  - Hyperthermia [Fatal]
  - Asphyxia [Fatal]
  - Completed suicide [Fatal]
  - Toxicity to various agents [Fatal]
